FAERS Safety Report 9640743 (Version 2)
Quarter: 2013Q4

REPORT INFORMATION
  Report Type: Report from Study
  Country: US (occurrence: US)
  Receive Date: 20131023
  Receipt Date: 20131023
  Transmission Date: 20140711
  Serious: Yes (Other)
  Sender: FDA-Public Use
  Company Number: US-ABBVIE-13P-163-1080118-00

PATIENT
  Age: 25 Year
  Sex: Female

DRUGS (2)
  1. LUPRON DEPOT [Suspect]
     Indication: ENDOMETRIOSIS
     Dates: start: 200408
  2. LUPRON DEPOT [Suspect]
     Dates: start: 200907, end: 200907

REACTIONS (9)
  - Adhesion [Unknown]
  - Endometriosis [Unknown]
  - Intervertebral disc protrusion [Unknown]
  - Pelvic pain [Recovering/Resolving]
  - Dyspareunia [Recovering/Resolving]
  - Bone pain [Not Recovered/Not Resolved]
  - Pelvic pain [Not Recovered/Not Resolved]
  - Dyspareunia [Not Recovered/Not Resolved]
  - Fallopian tube disorder [Not Recovered/Not Resolved]
